FAERS Safety Report 6692717-3 (Version None)
Quarter: 2010Q2

REPORT INFORMATION
  Report Type: 
  Country: None (occurrence: None)
  Receive Date: 20100422
  Receipt Date: 20100419
  Transmission Date: 20101027
  Serious: Yes (Hospitalization)
  Sender: FDA-Public Use
  Company Number: US-RB-003557-10

PATIENT
  Age: 25 Year
  Sex: Female

DRUGS (3)
  1. SUBOXONE [Suspect]
     Indication: DRUG DEPENDENCE
     Route: 060
     Dates: start: 20100101, end: 20100219
  2. SUBOXONE [Suspect]
     Route: 060
     Dates: start: 20100220
  3. SEROQUEL [Suspect]
     Indication: AFFECTIVE DISORDER
     Dosage: UNKNOWN DOSING DETAILS
     Route: 048
     Dates: end: 20100213

REACTIONS (6)
  - ABDOMINAL DISCOMFORT [None]
  - AFFECTIVE DISORDER [None]
  - DECREASED APPETITE [None]
  - HEADACHE [None]
  - HYPOPHAGIA [None]
  - NAUSEA [None]
